FAERS Safety Report 9500350 (Version 1)
Quarter: 2013Q1

REPORT INFORMATION
  Report Type: Spontaneous
  Country: US (occurrence: None)
  Receive Date: 20130124
  Receipt Date: 20130124
  Transmission Date: 20140127
  Serious: Yes (Hospitalization)
  Sender: FDA-Public Use
  Company Number: 2012PROUSA01924

PATIENT
  Age: 64 Year
  Sex: Male
  Weight: 83.9 kg

DRUGS (7)
  1. PROVENGE (SIPULEUCEL-T) SUSPENSION, 250ML [Suspect]
     Indication: PROSTATE CANCER METASTATIC
     Dosage: 250 ML, SINGLE, INTRAVENOUS
     Route: 042
     Dates: start: 20120220, end: 20120220
  2. ADDRELL (AMFETAMINE ASPARTATE, AMFETAMINE SULFATE, DEXAMFETAMINE SACCHARATE, DEXAMFETAMINE SULFATE) [Concomitant]
  3. EFFEXOR (VENLAFAXINE HYDROCHLORIDE) UNKNOWN [Concomitant]
  4. FLEXERIL (CYCLOBENZAPRINE HYDROCHLORIDE) [Concomitant]
  5. ZOLOFT (SERTRALINE HYDROCHLORIDE) [Concomitant]
  6. OXYCODONE (OXYCODONE) [Concomitant]
  7. PRILOSEC (OMEPRAZOLE MAGNESIUM) [Concomitant]

REACTIONS (3)
  - Nausea [None]
  - Vomiting [None]
  - Blood creatine increased [None]
